FAERS Safety Report 6984137-9 (Version None)
Quarter: 2010Q3

REPORT INFORMATION
  Report Type: 
  Country: None (occurrence: None)
  Receive Date: 20100915
  Receipt Date: 20090521
  Transmission Date: 20110219
  Serious: No
  Sender: FDA-Public Use
  Company Number: US-WYE-H09470709

PATIENT
  Sex: Female
  Weight: 64.92 kg

DRUGS (4)
  1. PRISTIQ [Suspect]
     Indication: ANXIETY
     Route: 048
     Dates: start: 20090414, end: 20090521
  2. PRISTIQ [Suspect]
     Indication: DEPRESSION
  3. MULTI-VITAMINS [Concomitant]
  4. TAMOXIFEN CITRATE [Concomitant]

REACTIONS (6)
  - DRUG WITHDRAWAL SYNDROME [None]
  - FEELING ABNORMAL [None]
  - INFLUENZA LIKE ILLNESS [None]
  - LETHARGY [None]
  - NAUSEA [None]
  - PAIN [None]
